FAERS Safety Report 7711418-3 (Version None)
Quarter: 2011Q3

REPORT INFORMATION
  Report Type: 
  Country: None (occurrence: None)
  Receive Date: 20110826
  Receipt Date: 20110801
  Transmission Date: 20111222
  Serious: No
  Sender: FDA-Public Use
  Company Number: US-BAYER-2011-067539

PATIENT
  Sex: Female

DRUGS (1)
  1. MIRENA [Suspect]
     Dosage: 20 ?G/D, CONT
     Route: 015
     Dates: end: 20110728

REACTIONS (4)
  - HYPERSENSITIVITY [None]
  - AURICULAR SWELLING [None]
  - URTICARIA [None]
  - SWELLING FACE [None]
